FAERS Safety Report 19031326 (Version 1)
Quarter: 2021Q1

REPORT INFORMATION
  Report Type: Spontaneous
  Country: US (occurrence: US)
  Receive Date: 20210318
  Receipt Date: 20210318
  Transmission Date: 20210420
  Serious: Yes (Hospitalization)
  Sender: FDA-Public Use
  Company Number: None

PATIENT
  Age: 60 Year
  Sex: Female
  Weight: 122 kg

DRUGS (3)
  1. LIQUID ORAL VANCOMYCIN [Concomitant]
  2. VANCOMYCIN CAPSULE 125MG [Suspect]
     Active Substance: VANCOMYCIN
     Indication: CLOSTRIDIUM DIFFICILE COLITIS
     Dosage: 1 CAPSULE QID PO??27?NOV?2020?29?NOV?2020 / 26?27?AUG?AUG0...??30?NOV?2020   ? 02?DEC?2020
     Route: 048
     Dates: start: 20201127, end: 20201129
  3. DIFICID [Concomitant]
     Active Substance: FIDAXOMICIN

REACTIONS (3)
  - Vomiting [None]
  - Nausea [None]
  - Disease recurrence [None]

NARRATIVE: CASE EVENT DATE: 20200826
